FAERS Safety Report 16416912 (Version 3)
Quarter: 2019Q3

REPORT INFORMATION
  Report Type: Spontaneous
  Country: US (occurrence: US)
  Receive Date: 20190611
  Receipt Date: 20190719
  Transmission Date: 20191004
  Serious: Yes (Hospitalization, Other)
  Sender: FDA-Public Use
  Company Number: US-ASTRAZENECA-2018SF34880

PATIENT
  Age: 19840 Day
  Sex: Female
  Weight: 86.2 kg

DRUGS (47)
  1. NEXIUM [Suspect]
     Active Substance: ESOMEPRAZOLE MAGNESIUM
     Indication: GASTROOESOPHAGEAL REFLUX DISEASE
     Route: 048
     Dates: start: 20100601, end: 20170801
  2. ONDANSETRON [Concomitant]
     Active Substance: ONDANSETRON
  3. METOPROLOL SUCCINATE. [Concomitant]
     Active Substance: METOPROLOL SUCCINATE
  4. ZIPRASIDONE. [Concomitant]
     Active Substance: ZIPRASIDONE
  5. LYRICA [Concomitant]
     Active Substance: PREGABALIN
  6. NEXIUM [Suspect]
     Active Substance: ESOMEPRAZOLE MAGNESIUM
     Indication: GASTROOESOPHAGEAL REFLUX DISEASE
     Route: 065
     Dates: start: 20150601, end: 20170825
  7. PANTOPRAZOLE [Suspect]
     Active Substance: PANTOPRAZOLE
     Indication: GASTROOESOPHAGEAL REFLUX DISEASE
     Route: 065
  8. FUROSEMIDE. [Concomitant]
     Active Substance: FUROSEMIDE
  9. HYDROXYZINE PAMOATE. [Concomitant]
     Active Substance: HYDROXYZINE PAMOATE
  10. OXYCODONE [Concomitant]
     Active Substance: OXYCODONE
  11. DULOXETINE. [Concomitant]
     Active Substance: DULOXETINE
  12. IMITREX [Concomitant]
     Active Substance: SUMATRIPTAN SUCCINATE
  13. SYMBICORT [Concomitant]
     Active Substance: BUDESONIDE\FORMOTEROL FUMARATE DIHYDRATE
  14. ALLOPURINOL. [Concomitant]
     Active Substance: ALLOPURINOL
  15. CYCLOBENZAPRINE. [Concomitant]
     Active Substance: CYCLOBENZAPRINE
  16. HYDRALAZINE [Concomitant]
     Active Substance: HYDRALAZINE HYDROCHLORIDE
  17. PROMETHAZINE [Concomitant]
     Active Substance: PROMETHAZINE HYDROCHLORIDE
  18. BUPROPION. [Concomitant]
     Active Substance: BUPROPION
  19. BENZTROPINE. [Concomitant]
     Active Substance: BENZTROPINE
  20. NAPROXEN. [Concomitant]
     Active Substance: NAPROXEN
  21. ROSUVASTATIN. [Concomitant]
     Active Substance: ROSUVASTATIN
  22. ALPRAZOLAM. [Concomitant]
     Active Substance: ALPRAZOLAM
  23. LEXAPRO [Concomitant]
     Active Substance: ESCITALOPRAM OXALATE
  24. NEXIUM [Suspect]
     Active Substance: ESOMEPRAZOLE MAGNESIUM
     Indication: GASTROOESOPHAGEAL REFLUX DISEASE
     Route: 048
     Dates: start: 200801, end: 201512
  25. OMEPRAZOLE. [Suspect]
     Active Substance: OMEPRAZOLE
     Indication: GASTROOESOPHAGEAL REFLUX DISEASE
     Dosage: GENERIC
     Route: 065
  26. CETIRIZINE [Concomitant]
     Active Substance: CETIRIZINE HYDROCHLORIDE
  27. DOXYCYCLINE. [Concomitant]
     Active Substance: DOXYCYCLINE
  28. LORATADINE. [Concomitant]
     Active Substance: LORATADINE
  29. HYDRALAZINE [Concomitant]
     Active Substance: HYDRALAZINE HYDROCHLORIDE
  30. IPRATROPIUM [Concomitant]
     Active Substance: IPRATROPIUM
  31. VYVANSE [Concomitant]
     Active Substance: LISDEXAMFETAMINE DIMESYLATE
  32. CETRIZINE [Concomitant]
     Active Substance: CETIRIZINE HYDROCHLORIDE
  33. NEXIUM 24HR [Suspect]
     Active Substance: ESOMEPRAZOLE MAGNESIUM
     Indication: GASTROOESOPHAGEAL REFLUX DISEASE
     Route: 048
     Dates: start: 20140701, end: 20150601
  34. PRILOSEC OTC [Suspect]
     Active Substance: OMEPRAZOLE MAGNESIUM
     Indication: GASTROOESOPHAGEAL REFLUX DISEASE
     Route: 048
     Dates: start: 200801, end: 201512
  35. PRILOSEC OTC [Suspect]
     Active Substance: OMEPRAZOLE MAGNESIUM
     Indication: GASTROOESOPHAGEAL REFLUX DISEASE
     Route: 048
     Dates: start: 20080101, end: 20100101
  36. METOLAZONE. [Concomitant]
     Active Substance: METOLAZONE
  37. FLUCONAZOLE. [Concomitant]
     Active Substance: FLUCONAZOLE
  38. SUMATRIPTAN. [Concomitant]
     Active Substance: SUMATRIPTAN
  39. SUMATRIPTAN. [Concomitant]
     Active Substance: SUMATRIPTAN
  40. LINZESS [Concomitant]
     Active Substance: LINACLOTIDE
  41. NEXIUM [Suspect]
     Active Substance: ESOMEPRAZOLE MAGNESIUM
     Indication: GASTROOESOPHAGEAL REFLUX DISEASE
     Route: 048
     Dates: start: 20080101, end: 20100101
  42. CARTIA [Concomitant]
  43. METFORMIN [Concomitant]
     Active Substance: METFORMIN HYDROCHLORIDE
  44. FAMOTIDINE. [Concomitant]
     Active Substance: FAMOTIDINE
  45. ESCITALOPRAM [Concomitant]
     Active Substance: ESCITALOPRAM OXALATE
  46. METHOCARBAMOL. [Concomitant]
     Active Substance: METHOCARBAMOL
  47. FUROSEMIDE. [Concomitant]
     Active Substance: FUROSEMIDE

REACTIONS (7)
  - Tubulointerstitial nephritis [Unknown]
  - Renal injury [Unknown]
  - Chronic kidney disease [Not Recovered/Not Resolved]
  - End stage renal disease [Unknown]
  - Dyspepsia [Unknown]
  - Acute kidney injury [Unknown]
  - Renal failure [Not Recovered/Not Resolved]

NARRATIVE: CASE EVENT DATE: 20150417
